FAERS Safety Report 8922792 (Version 1)
Quarter: 2012Q4

REPORT INFORMATION
  Report Type: 
  Country: US (occurrence: US)
  Receive Date: 20121125
  Receipt Date: 20121125
  Transmission Date: 20130627
  Serious: Yes (Hospitalization, Disabling)
  Sender: FDA-Public Use
  Company Number: US-BAYER-2012-120592

PATIENT
  Sex: Female

DRUGS (1)
  1. MIRENA [Suspect]
     Dosage: 20 mcg/24hr, CONT
     Route: 015
     Dates: start: 2006

REACTIONS (7)
  - Pain [None]
  - Ovarian enlargement [None]
  - Migraine [None]
  - Infertility female [None]
  - Breast pain [None]
  - Breast tenderness [None]
  - Menstruation irregular [None]
